FAERS Safety Report 9279622 (Version 1)
Quarter: 2013Q2

REPORT INFORMATION
  Report Type: Spontaneous
  Country: CZ (occurrence: CZ)
  Receive Date: 20130509
  Receipt Date: 20130509
  Transmission Date: 20140414
  Serious: Yes (Hospitalization, Other)
  Sender: FDA-Public Use
  Company Number: CZ-RANBAXY-2010R1-68586

PATIENT
  Age: 39 Year
  Sex: Female

DRUGS (2)
  1. SIMVASTATIN RANBAXY 20MG FILM-COATED TABLETS [Suspect]
     Indication: WEIGHT CONTROL
     Dosage: 60 MG/DAY
     Route: 065
  2. SIMVASTATIN RANBAXY 20MG FILM-COATED TABLETS [Suspect]
     Indication: WEIGHT CONTROL
     Dosage: 100 MG DAILY
     Route: 065

REACTIONS (5)
  - Compartment syndrome [Recovering/Resolving]
  - Rhabdomyolysis [Recovered/Resolved]
  - Off label use [Recovered/Resolved]
  - Renal failure acute [Recovered/Resolved]
  - Hepatic failure [Recovered/Resolved]
